FAERS Safety Report 16399329 (Version 1)
Quarter: 2019Q2

REPORT INFORMATION
  Report Type: Spontaneous
  Country: BR (occurrence: BR)
  Receive Date: 20190606
  Receipt Date: 20190606
  Transmission Date: 20190711
  Serious: Yes (Other)
  Sender: FDA-Public Use
  Company Number: BR-NODEN PHARMA DAC-NOD-2019-000097

PATIENT
  Sex: Female
  Weight: 65 kg

DRUGS (2)
  1. RASILEZ [Suspect]
     Active Substance: ALISKIREN
     Indication: CHEST PAIN
     Dosage: 300 MILLIGRAM, QD
     Route: 048
  2. RASILEZ [Suspect]
     Active Substance: ALISKIREN
     Indication: BLOOD PRESSURE INADEQUATELY CONTROLLED
     Dosage: 150 MILLIGRAM,UNK
     Route: 065
     Dates: start: 200803

REACTIONS (4)
  - Blood pressure inadequately controlled [Not Recovered/Not Resolved]
  - Fatigue [Not Recovered/Not Resolved]
  - Neuroblastoma [Not Recovered/Not Resolved]
  - Chest pain [Not Recovered/Not Resolved]
